FAERS Safety Report 10625643 (Version 2)
Quarter: 2014Q4

REPORT INFORMATION
  Report Type: Spontaneous
  Country: DZ (occurrence: DZ)
  Receive Date: 20141204
  Receipt Date: 20141204
  Transmission Date: 20150529
  Serious: Yes (Hospitalization)
  Sender: FDA-Public Use
  Company Number: PHHY2013DZ073024

PATIENT
  Age: 41 Year
  Sex: Male

DRUGS (1)
  1. EXFORGE [Suspect]
     Active Substance: AMLODIPINE BESYLATE\VALSARTAN
     Indication: ESSENTIAL HYPERTENSION
     Dosage: 1 DF (160 MG VALS/ 10 MG AMLO), QD
     Route: 048

REACTIONS (2)
  - Cholelithiasis migration [Recovered/Resolved]
  - Microlithiasis [Recovered/Resolved]
